FAERS Safety Report 4551181-0 (Version None)
Quarter: 2005Q1

REPORT INFORMATION
  Report Type: 
  Country: None (occurrence: None)
  Receive Date: 20050110
  Receipt Date: 20040520
  Transmission Date: 20050727
  Serious: Yes (Other)
  Sender: FDA-Public Use
  Company Number: 2004-05-2561

PATIENT
  Age: 14 Year
  Sex: Female

DRUGS (11)
  1. CORRECTOL [Suspect]
     Indication: CONSTIPATION
     Dosage: 1-2 PILLS PRN ORAL
     Route: 048
     Dates: start: 19700101, end: 19990101
  2. EX-LAX-TABLETS [Suspect]
     Indication: CONSTIPATION
     Dosage: 1-2 PILLS PRN ORAL
     Route: 048
     Dates: start: 19700101, end: 19980101
  3. DULCOLAX [Suspect]
     Indication: CONSTIPATION
     Dosage: 1-2 PILLS PRN ORAL
     Route: 048
     Dates: start: 19700101, end: 19980101
  4. QUESTRAN [Concomitant]
  5. PREVACID [Concomitant]
  6. BENTYL [Concomitant]
  7. REGLAN [Concomitant]
  8. PRILOSEC [Concomitant]
  9. ANUSOL [Concomitant]
  10. IMODIUM [Concomitant]
  11. LEVSIN PB [Concomitant]

REACTIONS (11)
  - ABDOMINAL PAIN UPPER [None]
  - CHEST PAIN [None]
  - CHOLECYSTECTOMY [None]
  - DIARRHOEA [None]
  - DYSPEPSIA [None]
  - ERUCTATION [None]
  - FAECAL INCONTINENCE [None]
  - HAEMORRHOIDS [None]
  - MUSCLE SPASMS [None]
  - NAUSEA [None]
  - VOMITING [None]
